FAERS Safety Report 4780261-X (Version None)
Quarter: 2005Q3

REPORT INFORMATION
  Report Type: 
  Country: None (occurrence: None)
  Receive Date: 20050926
  Receipt Date: 20050913
  Transmission Date: 20060218
  Serious: Yes (Death, Other)
  Sender: FDA-Public Use
  Company Number: 163-20785-05040521

PATIENT
  Age: 79 Year
  Sex: Male

DRUGS (1)
  1. THALOMID [Suspect]
     Indication: MYELODYSPLASTIC SYNDROME
     Dosage: 400 MG, DAILY, ORAL
     Route: 048
     Dates: start: 20050324, end: 20050401

REACTIONS (3)
  - COMPLETED SUICIDE [None]
  - PARALYSIS [None]
  - RENAL DISORDER [None]
